FAERS Safety Report 7865598-X (Version None)
Quarter: 2011Q4

REPORT INFORMATION
  Report Type: 
  Country: None (occurrence: None)
  Receive Date: 20111028
  Receipt Date: 20110118
  Transmission Date: 20120403
  Serious: No
  Sender: FDA-Public Use
  Company Number: US-GLAXOSMITHKLINE-A0907796A

PATIENT
  Sex: Male

DRUGS (5)
  1. SIMVASTATIN [Concomitant]
  2. ADVAIR DISKUS 100/50 [Suspect]
     Indication: CHRONIC OBSTRUCTIVE PULMONARY DISEASE
     Dosage: 1PUFF TWICE PER DAY
     Route: 055
     Dates: start: 20101201
  3. AMITRIPTYLINE HCL [Concomitant]
  4. COMBIVENT [Concomitant]
  5. AMLODIPINE [Concomitant]

REACTIONS (5)
  - TREMOR [None]
  - DRY MOUTH [None]
  - DRUG INEFFECTIVE [None]
  - DYSPNOEA [None]
  - DYSPHONIA [None]
